FAERS Safety Report 11197578 (Version 4)
Quarter: 2015Q2

REPORT INFORMATION
  Report Type: Report from Study
  Country: BR (occurrence: BR)
  Receive Date: 20150617
  Receipt Date: 20150630
  Transmission Date: 20150821
  Serious: Yes (Hospitalization)
  Sender: FDA-Public Use
  Company Number: BR-009507513-1506BRA004277

PATIENT
  Age: 47 Year
  Sex: Female
  Weight: 37 kg

DRUGS (7)
  1. LOPINAVIR (+) RITONAVIR [Suspect]
     Active Substance: LOPINAVIR\RITONAVIR
     Indication: TUBERCULOSIS
     Dosage: DOSE: 400/50 MG, QD
     Route: 048
     Dates: start: 20150211
  2. PYRAZINAMIDE. [Concomitant]
     Active Substance: PYRAZINAMIDE
     Indication: TUBERCULOSIS
     Dosage: APPROXIMATE DURATION OF USE: 2 MONTHS, QD
     Route: 048
     Dates: start: 20150211, end: 20150411
  3. ETHAMBUTOL [Concomitant]
     Active Substance: ETHAMBUTOL HYDROCHLORIDE
     Indication: TUBERCULOSIS
     Dosage: APPROXIMATE DURATION OF USE: 2 MONTHS, QD
     Route: 048
     Dates: start: 20150211, end: 20150411
  4. TENOFOVIR [Concomitant]
     Active Substance: TENOFOVIR
     Indication: HIV INFECTION
     Dosage: APPROXIMATE DURATION OF USE: 4 MONTHS, QD
     Route: 048
     Dates: start: 20150211
  5. RALTEGRAVIR POTASSIUM [Suspect]
     Active Substance: RALTEGRAVIR POTASSIUM
     Indication: HIV INFECTION
     Dosage: 400 MG, QD
     Route: 048
     Dates: start: 20150211
  6. RIFABUTIN. [Suspect]
     Active Substance: RIFABUTIN
     Indication: HIV INFECTION
     Dosage: 150 MG, QD
     Route: 048
     Dates: start: 20150211
  7. LAMIVUDINE. [Concomitant]
     Active Substance: LAMIVUDINE
     Indication: HIV INFECTION
     Dosage: APPROXIMATE DURATION OF USE: 1 YEAR, QD
     Route: 048
     Dates: start: 20150211

REACTIONS (4)
  - Weight decreased [Unknown]
  - Dyspepsia [Unknown]
  - Pancytopenia [Recovered/Resolved]
  - Arthralgia [Unknown]

NARRATIVE: CASE EVENT DATE: 20150415
